FAERS Safety Report 4515328-4 (Version None)
Quarter: 2004Q4

REPORT INFORMATION
  Report Type: 
  Country: None (occurrence: None)
  Receive Date: 20041126
  Receipt Date: 20041117
  Transmission Date: 20050328
  Serious: Yes (Other)
  Sender: FDA-Public Use
  Company Number: HQWYE506618NOV04

PATIENT
  Age: 67 Year
  Sex: Female
  Weight: 59.02 kg

DRUGS (2)
  1. PREMPHASE (PREMARIN;CYCRIN 14/14) [Suspect]
     Indication: HORMONE REPLACEMENT THERAPY
     Dosage: 1 TABLET 1 X PER 1 DAY, ORAL
     Route: 048
     Dates: start: 19940101, end: 20040101
  2. PREMPHASE (PREMARIN;CYCRIN 14/14) [Suspect]
     Indication: HORMONE REPLACEMENT THERAPY
     Dosage: 1 TABLET 1 X PER 1 DAY, ORAL
     Route: 048
     Dates: start: 20041001

REACTIONS (4)
  - ARTHRITIS [None]
  - CERVICAL POLYP [None]
  - ENDOMETRIAL HYPERTROPHY [None]
  - SPINAL COLUMN STENOSIS [None]
